FAERS Safety Report 17245956 (Version 2)
Quarter: 2020Q1

REPORT INFORMATION
  Report Type: Spontaneous
  Country: FR (occurrence: FR)
  Receive Date: 20200108
  Receipt Date: 20200310
  Transmission Date: 20200409
  Serious: Yes (Hospitalization)
  Sender: FDA-Public Use
  Company Number: FR-TEVA-2020-FR-1163410

PATIENT
  Age: 0 Day
  Sex: Male
  Weight: 2.97 kg

DRUGS (10)
  1. UMULINE NPH KWIKPEN 100 UI/1 ML, SUSPENSION INJECTABLE [Concomitant]
     Indication: GESTATIONAL DIABETES
     Route: 064
     Dates: start: 20191017, end: 20191125
  2. PARACETAMOL [Concomitant]
     Active Substance: ACETAMINOPHEN
     Indication: PAIN
     Dosage: UNKNOWN
     Route: 064
     Dates: start: 201908
  3. HUMALOG MIX25 100 UI/ML KWIKPEN, SUSPENSION INJECTABLE [Concomitant]
     Indication: GESTATIONAL DIABETES
     Dosage: 14 IU
     Route: 064
     Dates: start: 20191017, end: 20191125
  4. ISOFUNDINE, SOLUTION POUR PERFUSION [Concomitant]
     Active Substance: CALCIUM CHLORIDE\MAGNESIUM CHLORIDE\MALIC ACID\POTASSIUM CHLORIDE\SODIUM ACETATE\SODIUM CHLORIDE
     Route: 064
     Dates: start: 20191125, end: 20191125
  5. ROPIVACAINE (CHLORHYDRATE DE) MONOHYDRATE [Concomitant]
     Active Substance: ROPIVACAINE HYDROCHLORIDE
     Indication: EPIDURAL ANAESTHESIA
     Route: 051
     Dates: start: 20191125, end: 20191125
  6. HYDROXYZINE (CHLORHYDRATE D^) [Suspect]
     Active Substance: HYDROXYZINE HYDROCHLORIDE
     Indication: ANXIETY
     Dosage: 25 MILLIGRAM
     Route: 064
     Dates: start: 20191120, end: 20191124
  7. CHOLURSO 500 MG, COMPRIME PELLICULE [Concomitant]
     Indication: CHOLESTASIS
     Route: 064
     Dates: start: 20191119, end: 20191125
  8. SUFENTANIL [Concomitant]
     Active Substance: SUFENTANIL
     Indication: EPIDURAL ANAESTHESIA
     Route: 051
     Dates: start: 20191125, end: 20191125
  9. MEGAMAG 45 MG, GELULE [Concomitant]
     Indication: VITAMIN SUPPLEMENTATION
     Route: 064
     Dates: start: 20190802, end: 20190823
  10. VENLAFAXINE [Suspect]
     Active Substance: VENLAFAXINE HYDROCHLORIDE
     Indication: FIBROMYALGIA
     Route: 064
     Dates: start: 20190330, end: 20191125

REACTIONS (3)
  - Neonatal respiratory distress [Recovered/Resolved]
  - Tremor [Recovered/Resolved]
  - Clonus [Recovered/Resolved]

NARRATIVE: CASE EVENT DATE: 20191125
